FAERS Safety Report 6506526-9 (Version None)
Quarter: 2009Q4

REPORT INFORMATION
  Report Type: 
  Country: None (occurrence: None)
  Receive Date: 20091221
  Receipt Date: 20091215
  Transmission Date: 20100525
  Serious: Yes (Hospitalization)
  Sender: FDA-Public Use
  Company Number: FR-BAYER-200943104GPV

PATIENT
  Age: 41 Year
  Sex: Male

DRUGS (11)
  1. IZILOX [Suspect]
     Indication: ARTHROPOD BITE
     Dosage: TOTAL DAILY DOSE: 400 MG  UNIT DOSE: 400 MG
     Route: 048
     Dates: start: 20091031, end: 20091115
  2. RIFAMPICIN [Suspect]
     Indication: PULMONARY TUBERCULOSIS
     Route: 048
     Dates: start: 20091119
  3. RIFAMPICIN [Suspect]
     Dosage: TOTAL DAILY DOSE: 600 MG
     Route: 048
     Dates: start: 20091110, end: 20091112
  4. SUBUTEX [Concomitant]
     Dosage: TOTAL DAILY DOSE: 16 MG
  5. LEXOMIL [Concomitant]
  6. RIFATER [Concomitant]
     Indication: PULMONARY TUBERCULOSIS
     Dates: start: 20090912, end: 20090930
  7. MYAMBUTOL [Concomitant]
     Indication: PULMONARY TUBERCULOSIS
     Dates: start: 20090912, end: 20090930
  8. MYAMBUTOL [Concomitant]
     Dates: start: 20091123
  9. MYAMBUTOL [Concomitant]
     Dates: start: 20091022, end: 20091116
  10. RIMIFON [Concomitant]
     Indication: PULMONARY TUBERCULOSIS
     Dates: start: 20091022
  11. PIRILENE [Concomitant]
     Indication: PULMONARY TUBERCULOSIS
     Dates: start: 20091030, end: 20091030

REACTIONS (2)
  - PRURITUS [None]
  - PYREXIA [None]
